FAERS Safety Report 22238582 (Version 1)
Quarter: 2023Q2

REPORT INFORMATION
  Report Type: Spontaneous
  Country: US (occurrence: None)
  Receive Date: 20230420
  Receipt Date: 20230420
  Transmission Date: 20230721
  Serious: No
  Sender: FDA-Public Use
  Company Number: None

PATIENT
  Age: 84 Year
  Sex: Male

DRUGS (2)
  1. DEVICE [Suspect]
     Active Substance: DEVICE
     Indication: Product used for unknown indication
     Dosage: FREQUENCY : AS NEEDED;?
     Dates: start: 20230402, end: 20230402
  2. FLUOROMETHOLONE [Suspect]
     Active Substance: FLUOROMETHOLONE

REACTIONS (5)
  - Product packaging confusion [None]
  - SARS-CoV-2 test positive [None]
  - Wrong technique in device usage process [None]
  - Product preparation error [None]
  - False positive investigation result [None]

NARRATIVE: CASE EVENT DATE: 20230402
